FAERS Safety Report 7973648-5 (Version None)
Quarter: 2011Q4

REPORT INFORMATION
  Report Type: 
  Country: None (occurrence: None)
  Receive Date: 20111213
  Receipt Date: 20111209
  Transmission Date: 20120403
  Serious: Yes (Death)
  Sender: FDA-Public Use
  Company Number: JP-EISAI INC-E2020-10094-SPO-JP

PATIENT
  Age: 74 Year
  Sex: Female

DRUGS (3)
  1. LENDORMIN [Concomitant]
     Indication: INSOMNIA
     Route: 048
     Dates: start: 20100101
  2. CEROCRAL [Concomitant]
     Dates: start: 20100101
  3. ARICEPT [Suspect]
     Indication: DEMENTIA ALZHEIMER'S TYPE
     Route: 048
     Dates: start: 20100101

REACTIONS (1)
  - DROWNING [None]
